FAERS Safety Report 11491641 (Version 1)
Quarter: 2015Q3

REPORT INFORMATION
  Report Type: Spontaneous
  Country: FR (occurrence: FR)
  Receive Date: 20150910
  Receipt Date: 20150910
  Transmission Date: 20151125
  Serious: Yes (Hospitalization, Other)
  Sender: FDA-Public Use
  Company Number: FR-PFIZER INC-2015300179

PATIENT
  Age: 47 Year
  Sex: Male

DRUGS (17)
  1. CYTARABINE SANDOZ [Suspect]
     Active Substance: CYTARABINE
     Indication: ACUTE LYMPHOCYTIC LEUKAEMIA
     Dosage: UNK
     Dates: start: 20150512
  2. VINCRISTINE HOSPIRA [Suspect]
     Active Substance: VINCRISTINE
     Indication: CHRONIC LYMPHOCYTIC LEUKAEMIA
     Dosage: UNK
     Dates: start: 20150512
  3. ENDOXAN [Suspect]
     Active Substance: CYCLOPHOSPHAMIDE
     Indication: ACUTE LYMPHOCYTIC LEUKAEMIA
     Dosage: UNK
     Dates: start: 20150512
  4. TAHOR [Concomitant]
     Active Substance: ATORVASTATIN CALCIUM
  5. KARDEGIC [Concomitant]
     Active Substance: ASPIRIN LYSINE
  6. ZYLORIC [Concomitant]
     Active Substance: ALLOPURINOL
  7. SPRYCEL [Suspect]
     Active Substance: DASATINIB
  8. AZANTAC [Concomitant]
     Active Substance: RANITIDINE HYDROCHLORIDE
  9. GRANOCYTE [Concomitant]
     Active Substance: LENOGRASTIM
  10. METHOTREXATE SODIUM. [Suspect]
     Active Substance: METHOTREXATE SODIUM
     Indication: LYMPHOCYTIC LEUKAEMIA
     Dosage: UNK
     Dates: start: 20150512
  11. HYDROCORTISONE UPJOHN [Suspect]
     Active Substance: HYDROCORTISONE
     Indication: ACUTE LYMPHOCYTIC LEUKAEMIA
     Dosage: UNK
     Dates: start: 20150512
  12. COVERSYL [Concomitant]
     Active Substance: PERINDOPRIL
  13. LEDERFOLINE [Concomitant]
     Active Substance: LEUCOVORIN CALCIUM
  14. DAUNORUBICIN [Suspect]
     Active Substance: DAUNORUBICIN
     Indication: ACUTE LYMPHOCYTIC LEUKAEMIA
     Dosage: UNK
     Dates: start: 20150512
  15. BACTRIM [Concomitant]
     Active Substance: SULFAMETHOXAZOLE\TRIMETHOPRIM
  16. DEXAMETHASONE. [Suspect]
     Active Substance: DEXAMETHASONE
  17. ZELITREX [Concomitant]
     Active Substance: VALACYCLOVIR HYDROCHLORIDE

REACTIONS (7)
  - Hepatocellular injury [Unknown]
  - Renal failure [Unknown]
  - Pancytopenia [Unknown]
  - Febrile bone marrow aplasia [Recovered/Resolved]
  - Septic shock [Recovered/Resolved]
  - Ischaemic hepatitis [Unknown]
  - Hypotension [Unknown]

NARRATIVE: CASE EVENT DATE: 20150518
